FAERS Safety Report 9178941 (Version 1)
Quarter: 2013Q1

REPORT INFORMATION
  Report Type: Spontaneous
  Country: US (occurrence: US)
  Receive Date: 20130321
  Receipt Date: 20130321
  Transmission Date: 20140127
  Serious: Yes (Hospitalization)
  Sender: FDA-Public Use
  Company Number: US-BAYER-2013-032052

PATIENT
  Age: 38 Year
  Sex: Female

DRUGS (20)
  1. YASMIN [Suspect]
  2. CIPROFLOXACIN [Concomitant]
     Dosage: UNK
  3. WELLBUTRIN [Concomitant]
     Dosage: UNK
  4. SOLIFENACIN [Concomitant]
  5. ACYCLOVIR [ACICLOVIR] [Concomitant]
  6. TROSPIUM [Concomitant]
  7. BOTOX [Concomitant]
  8. SEPTRA [Concomitant]
     Indication: URINARY TRACT INFECTION
  9. SENNA-S [DOCUSATE SODIUM,SENNA ALEXANDRINA] [Concomitant]
  10. BUPROPION [Concomitant]
  11. SANCTURA [Concomitant]
  12. DEXAMETHASONE SODIUM PHOSPHATE [Concomitant]
  13. MELOXICAM [Concomitant]
  14. ACETAMINOPHEN [Concomitant]
  15. BOTULINUM TOXIN TYPE A [Concomitant]
  16. METHYLENE BLUE [Concomitant]
  17. VICODIN [Concomitant]
  18. DILAUDID [Concomitant]
  19. PERCOCET [OXYCODONE HYDROCHLORIDE,PARACETAMOL] [Concomitant]
  20. ZOFRAN [Concomitant]

REACTIONS (2)
  - Pulmonary embolism [Recovered/Resolved]
  - Deep vein thrombosis [None]
